FAERS Safety Report 6651466-8 (Version None)
Quarter: 2010Q1

REPORT INFORMATION
  Report Type: 
  Country: None (occurrence: None)
  Receive Date: 20100322
  Receipt Date: 20100309
  Transmission Date: 20100710
  Serious: Yes (Hospitalization)
  Sender: FDA-Public Use
  Company Number: 005898

PATIENT
  Sex: Female
  Weight: 45 kg

DRUGS (11)
  1. NEUPRO [Suspect]
     Indication: PARKINSON'S DISEASE
     Dosage: (2 MG QD TRANSDERMAL), (4 MG QD TRANSDERMAL)
     Route: 062
     Dates: start: 20091007, end: 20091102
  2. NEUPRO [Suspect]
     Indication: PARKINSON'S DISEASE
     Dosage: (2 MG QD TRANSDERMAL), (4 MG QD TRANSDERMAL)
     Route: 062
     Dates: start: 20091103
  3. CARBIDOPA AND LEVODOPA [Suspect]
     Indication: PARKINSON'S DISEASE
     Dosage: (100/25 MG ONCE DAILY), (200/50 MG ONCE DAILY), (200/50 MG TWICE DAILY), (200/50 MG ONCE DAILY)
     Dates: start: 20090828, end: 20090915
  4. CARBIDOPA AND LEVODOPA [Suspect]
     Indication: PARKINSON'S DISEASE
     Dosage: (100/25 MG ONCE DAILY), (200/50 MG ONCE DAILY), (200/50 MG TWICE DAILY), (200/50 MG ONCE DAILY)
     Dates: start: 20090916, end: 20100101
  5. CARBIDOPA AND LEVODOPA [Suspect]
     Indication: PARKINSON'S DISEASE
     Dosage: (100/25 MG ONCE DAILY), (200/50 MG ONCE DAILY), (200/50 MG TWICE DAILY), (200/50 MG ONCE DAILY)
     Dates: start: 20090501
  6. CARBIDOPA AND LEVODOPA [Suspect]
     Indication: PARKINSON'S DISEASE
     Dosage: (100/25 MG ONCE DAILY), (200/50 MG ONCE DAILY), (200/50 MG TWICE DAILY), (200/50 MG ONCE DAILY)
     Dates: start: 20100101
  7. LEVOCOMP (LEVODOPA COMP C) (NOT SPECIFIED) [Suspect]
     Indication: PARKINSON'S DISEASE
     Dosage: SEE IMAGE
     Dates: start: 20081101, end: 20090816
  8. LEVOCOMP (LEVODOPA COMP C) (NOT SPECIFIED) [Suspect]
     Indication: PARKINSON'S DISEASE
     Dosage: SEE IMAGE
     Dates: start: 20090817, end: 20090827
  9. LEVOCOMP (LEVODOPA COMP C) (NOT SPECIFIED) [Suspect]
     Indication: PARKINSON'S DISEASE
     Dosage: SEE IMAGE
     Dates: start: 20090902, end: 20091110
  10. LEVOCOMP (LEVODOPA COMP C) (NOT SPECIFIED) [Suspect]
     Indication: PARKINSON'S DISEASE
     Dosage: SEE IMAGE
     Dates: start: 20091111
  11. TORSEMIDE [Concomitant]

REACTIONS (7)
  - CHEST PAIN [None]
  - CHRONIC OBSTRUCTIVE PULMONARY DISEASE [None]
  - CONDITION AGGRAVATED [None]
  - DELIRIUM [None]
  - FALL [None]
  - FEMUR FRACTURE [None]
  - HIP FRACTURE [None]
